FAERS Safety Report 6670270-8 (Version None)
Quarter: 2010Q2

REPORT INFORMATION
  Report Type: 
  Country: None (occurrence: None)
  Receive Date: 20100405
  Receipt Date: 20100322
  Transmission Date: 20101027
  Serious: Yes (Other)
  Sender: FDA-Public Use
  Company Number: 1-22001371

PATIENT
  Age: 87 Year
  Sex: 0

DRUGS (5)
  1. ULTIVA [Suspect]
     Indication: ANALGESIC THERAPY
     Dosage: SEE IMAGE
     Route: 042
     Dates: start: 20090826, end: 20090826
  2. SEVOFRANE (SEVOFLURANE) LIQUID FOR INHALATION [Suspect]
     Indication: ANAESTHESIA
     Dosage: SEE IMAGE
     Route: 055
     Dates: start: 20090826, end: 20090826
  3. MIDAZOLAM HCL [Concomitant]
  4. ROCURONIUM BROMIDE [Concomitant]
  5. FENTANYL-100 [Concomitant]

REACTIONS (3)
  - BACTERAEMIA [None]
  - HYPERTHERMIA MALIGNANT [None]
  - METABOLIC ACIDOSIS [None]
